FAERS Safety Report 23069436 (Version 3)
Quarter: 2024Q2

REPORT INFORMATION
  Report Type: Report from Study
  Country: US (occurrence: US)
  Receive Date: 20231016
  Receipt Date: 20240516
  Transmission Date: 20240716
  Serious: Yes (Other)
  Sender: FDA-Public Use
  Company Number: US-002147023-NVSC2023US221998

PATIENT
  Age: 56 Year
  Sex: Female

DRUGS (1)
  1. KESIMPTA [Suspect]
     Active Substance: OFATUMUMAB
     Indication: Relapsing-remitting multiple sclerosis
     Dosage: 20 MG, QMO (EVERY 4 WEEKS)
     Route: 058
     Dates: start: 20230908

REACTIONS (6)
  - Clostridium difficile infection [Unknown]
  - Fatigue [Not Recovered/Not Resolved]
  - Influenza like illness [Unknown]
  - Pain [Unknown]
  - Bronchitis [Unknown]
  - Infection [Unknown]

NARRATIVE: CASE EVENT DATE: 20230908
